FAERS Safety Report 13415686 (Version 1)
Quarter: 2017Q2

REPORT INFORMATION
  Report Type: Report from Study
  Country: BR (occurrence: BR)
  Receive Date: 20170406
  Receipt Date: 20170406
  Transmission Date: 20170830
  Serious: Yes (Death, Hospitalization)
  Sender: FDA-Public Use
  Company Number: BR-JNJFOC-20170401458

PATIENT
  Sex: Male

DRUGS (1)
  1. STELARA [Suspect]
     Active Substance: USTEKINUMAB
     Indication: PSORIASIS
     Route: 058
     Dates: start: 20150609, end: 20161211

REACTIONS (5)
  - Congestive cardiomyopathy [Fatal]
  - Pneumonia [Unknown]
  - Pulmonary embolism [Fatal]
  - General physical condition abnormal [Unknown]
  - Treatment noncompliance [Unknown]
